FAERS Safety Report 5027934-1 (Version None)
Quarter: 2006Q2

REPORT INFORMATION
  Report Type: 
  Country: None (occurrence: None)
  Receive Date: 20060609
  Receipt Date: 20060524
  Transmission Date: 20061013
  Serious: Yes (Life-Threatening, Other)
  Sender: FDA-Public Use
  Company Number: DSA_27554_2005

PATIENT
  Sex: Female

DRUGS (2)
  1. VASOTEC [Suspect]
     Dosage: DF
     Dates: start: 19930101, end: 19930101
  2. DIABETES MEDICATION [Concomitant]

REACTIONS (2)
  - BLOOD PRESSURE SYSTOLIC INCREASED [None]
  - DRUG HYPERSENSITIVITY [None]
